FAERS Safety Report 18417447 (Version 2)
Quarter: 2021Q1

REPORT INFORMATION
  Report Type: Spontaneous
  Country: US (occurrence: US)
  Receive Date: 20201022
  Receipt Date: 20210122
  Transmission Date: 20210419
  Serious: No
  Sender: FDA-Public Use
  Company Number: 2020SGN02752

PATIENT
  Age: 58 Year
  Sex: Female

DRUGS (4)
  1. CAPECITABINE. [Concomitant]
     Active Substance: CAPECITABINE
  2. MILK OF MAGNESIA [Concomitant]
     Active Substance: MAGNESIUM HYDROXIDE
  3. MIRALAX [Concomitant]
     Active Substance: POLYETHYLENE GLYCOL 3350
  4. TUKYSA [Suspect]
     Active Substance: TUCATINIB
     Indication: BREAST CANCER FEMALE

REACTIONS (10)
  - Paracentesis [Unknown]
  - Nausea [Unknown]
  - Joint swelling [Recovering/Resolving]
  - Faeces hard [Unknown]
  - Peripheral swelling [Recovering/Resolving]
  - Product dose omission issue [Unknown]
  - Constipation [Unknown]
  - Abdominal distension [Unknown]
  - Ascites [Unknown]
  - Diarrhoea [Unknown]

NARRATIVE: CASE EVENT DATE: 20200626
